FAERS Safety Report 13126625 (Version 1)
Quarter: 2017Q1

REPORT INFORMATION
  Report Type: Spontaneous
  Country: JP (occurrence: JP)
  Receive Date: 20170118
  Receipt Date: 20170118
  Transmission Date: 20170428
  Serious: Yes (Other)
  Sender: FDA-Public Use
  Company Number: JP-BRISTOL-MYERS SQUIBB COMPANY-BMS-2016-036377

PATIENT

DRUGS (1)
  1. WARFARIN SODIUM. [Suspect]
     Active Substance: WARFARIN SODIUM
     Indication: PRODUCT USED FOR UNKNOWN INDICATION
     Dosage: 1 MG, QD
     Route: 065
     Dates: start: 20130726, end: 20140519

REACTIONS (5)
  - Continuous haemodiafiltration [Unknown]
  - Renal failure [Unknown]
  - Off label use [Unknown]
  - Haemorrhage [Unknown]
  - Anuria [Unknown]

NARRATIVE: CASE EVENT DATE: 20140519
